FAERS Safety Report 4347887-9 (Version None)
Quarter: 2004Q2

REPORT INFORMATION
  Report Type: 
  Country: None (occurrence: None)
  Receive Date: 20040422
  Receipt Date: 20040412
  Transmission Date: 20050107
  Serious: Yes (Hospitalization, Other)
  Sender: FDA-Public Use
  Company Number: HQWYE101525MAR04

PATIENT
  Age: 42 Year
  Sex: Female
  Weight: 48 kg

DRUGS (5)
  1. MYLOTARG [Suspect]
     Indication: ACUTE MYELOID LEUKAEMIA
     Dosage: 14 MG 1 X PER 1 DAY, INTRAVENOUS
     Route: 042
     Dates: start: 20030512, end: 20030512
  2. FLUCONAZOLE [Concomitant]
  3. ACYCLOVIR [Concomitant]
  4. AUGMENTIIN ORAL (AMOXICILLIN TRIHYDRATE/CLAVULANATE POTASSIUM) [Concomitant]
  5. PROVERA [Concomitant]

REACTIONS (2)
  - BILIRUBIN CONJUGATED INCREASED [None]
  - BLOOD BILIRUBIN INCREASED [None]
